FAERS Safety Report 9153811 (Version 1)
Quarter: 2013Q1

REPORT INFORMATION
  Report Type: Spontaneous
  Country: ES (occurrence: ES)
  Receive Date: 20130311
  Receipt Date: 20130311
  Transmission Date: 20140127
  Serious: Yes (Hospitalization)
  Sender: FDA-Public Use
  Company Number: ES-ELI_LILLY_AND_COMPANY-ES201008004413

PATIENT
  Age: 76 Year
  Sex: Female
  Weight: 82 kg

DRUGS (11)
  1. FORSTEO [Suspect]
     Indication: OSTEOPOROSIS
     Dosage: 20 UG, DAILY (1/D)
     Route: 058
     Dates: start: 20100616
  2. LEVOTHROID [Concomitant]
     Indication: THYROID DISORDER
     Dosage: 100 MG, DAILY (1/D)
     Route: 048
  3. ZARATOR [Concomitant]
     Dosage: 20 MG, DAILY (1/D)
     Route: 048
  4. OMEPRAZOL [Concomitant]
     Indication: GASTRIC DISORDER
     Dosage: 40 MG, DAILY (1/D)
     Route: 048
  5. METAMIZOLE [Concomitant]
     Indication: PAIN
     Dosage: UNK, AS NEEDED
     Route: 048
  6. ORFIDAL [Concomitant]
     Indication: INSOMNIA
     Dosage: 1 D/F, 2/W
     Route: 048
  7. SEGURIL [Concomitant]
     Indication: POLYURIA
     Dosage: 1 D/F, DAILY (1/D)
     Route: 048
  8. IRBESARTAN [Concomitant]
     Indication: HYPERTENSION
     Dosage: 1 D/F, DAILY (1/D)
     Route: 048
  9. PARACETAMOL [Concomitant]
     Indication: PAIN
     Dosage: 1 G, EVERY 8 HRS
     Route: 048
  10. IBUPROFENO [Concomitant]
     Indication: PAIN
     Dosage: 600 MG, EVERY 8 HRS
     Route: 048
  11. FERROSANOL [Concomitant]
     Indication: MINERAL SUPPLEMENTATION
     Dosage: 1 D/F, DAILY (1/D)
     Route: 048

REACTIONS (1)
  - Post procedural infection [Unknown]
